FAERS Safety Report 7583846-0 (Version None)
Quarter: 2011Q2

REPORT INFORMATION
  Report Type: 
  Country: None (occurrence: None)
  Receive Date: 20110630
  Receipt Date: 20110617
  Transmission Date: 20111010
  Serious: Yes (Hospitalization)
  Sender: FDA-Public Use
  Company Number: DE-JNJFOC-20110507244

PATIENT
  Sex: Male
  Weight: 90 kg

DRUGS (5)
  1. IBUPROFEN [Suspect]
     Indication: PRODUCT USED FOR UNKNOWN INDICATION
     Route: 048
     Dates: start: 20110507, end: 20110507
  2. DIMENHYDRINATE [Suspect]
     Indication: PRODUCT USED FOR UNKNOWN INDICATION
     Route: 048
     Dates: start: 20110507, end: 20110507
  3. CLARITHROMYCIN [Suspect]
     Indication: PRODUCT USED FOR UNKNOWN INDICATION
     Route: 048
     Dates: start: 20110507, end: 20110507
  4. SIMVASTATIN [Suspect]
     Indication: PRODUCT USED FOR UNKNOWN INDICATION
     Dosage: ALSO REPORTED AS 1000 MG.
     Dates: start: 20110507, end: 20110507
  5. BISOPROLOL FUMARATE [Suspect]
     Indication: PRODUCT USED FOR UNKNOWN INDICATION
     Route: 048
     Dates: start: 20110507, end: 20110507

REACTIONS (8)
  - SUICIDE ATTEMPT [None]
  - SOMNOLENCE [None]
  - BRADYCARDIA [None]
  - NAUSEA [None]
  - DEHYDRATION [None]
  - HYPOTENSION [None]
  - MULTIPLE DRUG OVERDOSE [None]
  - VOMITING [None]
